FAERS Safety Report 12850259 (Version 3)
Quarter: 2016Q4

REPORT INFORMATION
  Report Type: Report from Study
  Country: NL (occurrence: NL)
  Receive Date: 20161014
  Receipt Date: 20161109
  Transmission Date: 20170207
  Serious: Yes (Hospitalization, Other)
  Sender: FDA-Public Use
  Company Number: PHHY2016NL138706

PATIENT
  Age: 10 Year
  Sex: Female

DRUGS (10)
  1. AUGMENTIN [Concomitant]
     Active Substance: AMOXICILLIN\CLAVULANATE POTASSIUM
     Indication: ANTIBIOTIC PROPHYLAXIS
     Dosage: 1 DF, QD 473.5 MG
     Route: 065
  2. ILARIS [Suspect]
     Active Substance: CANAKINUMAB
     Indication: CONGENITAL DYSKERATOSIS
     Dosage: 1 DF, EVERY 4 WEEKS
     Route: 065
  3. VITAMIN D [Concomitant]
     Active Substance: CHOLECALCIFEROL
     Indication: PRODUCT USED FOR UNKNOWN INDICATION
     Route: 065
  4. ILARIS [Suspect]
     Active Substance: CANAKINUMAB
     Indication: ARTHRITIS
     Dosage: UNK
     Route: 065
     Dates: start: 20160714
  5. OMEPRAZOLE. [Concomitant]
     Active Substance: OMEPRAZOLE
     Indication: PRODUCT USED FOR UNKNOWN INDICATION
     Dosage: 20 MG, QD
     Route: 065
  6. LEVOTHYROXINE. [Concomitant]
     Active Substance: LEVOTHYROXINE
     Indication: PRODUCT USED FOR UNKNOWN INDICATION
     Dosage: 68.71 UG, QD
     Route: 065
  7. ILARIS [Suspect]
     Active Substance: CANAKINUMAB
     Indication: AUTOINFLAMMATORY DISEASE
     Dosage: UNK
     Route: 065
     Dates: start: 20160908
  8. ILARIS [Suspect]
     Active Substance: CANAKINUMAB
     Dosage: 100 MG, 1EVERY 4 WEEKS
     Route: 058
     Dates: start: 20160318, end: 20161006
  9. NEOTIGASON [Suspect]
     Active Substance: ACITRETIN
     Indication: CONGENITAL DYSKERATOSIS
     Dosage: 10 MG, QD
     Route: 048
  10. RETINOL [Concomitant]
     Active Substance: RETINOL
     Indication: PRODUCT USED FOR UNKNOWN INDICATION
     Dosage: 50.000 IU, QD
     Route: 065

REACTIONS (9)
  - Renal impairment [Not Recovered/Not Resolved]
  - Tubulointerstitial nephritis [Not Recovered/Not Resolved]
  - Haemoglobin decreased [Unknown]
  - Proteinuria [Unknown]
  - Product use issue [Unknown]
  - Activated partial thromboplastin time shortened [Unknown]
  - Pain in extremity [Unknown]
  - Alopecia [Unknown]
  - Hypertension [Unknown]

NARRATIVE: CASE EVENT DATE: 20160418
